FAERS Safety Report 6334694-0 (Version None)
Quarter: 2009Q3

REPORT INFORMATION
  Report Type: 
  Country: None (occurrence: None)
  Receive Date: 20090831
  Receipt Date: 20090825
  Transmission Date: 20100115
  Serious: Yes (Life-Threatening, Hospitalization)
  Sender: FDA-Public Use
  Company Number: US-BAYER-200913432BCC

PATIENT
  Age: 61 Year
  Sex: Male
  Weight: 77 kg

DRUGS (8)
  1. ALEVE [Suspect]
     Indication: ARTHRITIS
     Dosage: TOTAL DAILY DOSE: 440 MG  UNIT DOSE: 220 MG
     Route: 048
     Dates: end: 20090801
  2. LIPITOR [Concomitant]
     Route: 065
  3. AMOXICILLIN [Concomitant]
     Dosage: TOTAL DAILY DOSE: 2 DF  UNIT DOSE: 1 DF
     Route: 048
  4. POTASSIUM CL [Concomitant]
     Route: 065
  5. METOPROLOL TARTRATE [Concomitant]
     Route: 065
  6. OXYCODONE [Concomitant]
     Route: 065
  7. METHADONE [Concomitant]
     Dosage: AS USED: 20 MG  UNIT DOSE: 10 MG
     Route: 065
  8. EQUATE ASPIRIN [Concomitant]
     Route: 065

REACTIONS (4)
  - HAEMATEMESIS [None]
  - HYPERHIDROSIS [None]
  - MELAENA [None]
  - PEPTIC ULCER HAEMORRHAGE [None]
